FAERS Safety Report 15383973 (Version 2)
Quarter: 2018Q4

REPORT INFORMATION
  Report Type: Spontaneous
  Country: DE (occurrence: DE)
  Receive Date: 20180914
  Receipt Date: 20180914
  Transmission Date: 20190204
  Serious: No
  Sender: FDA-Public Use
  Company Number: DE-HORMOSAN-2018-01864

PATIENT
  Age: 56 Year
  Sex: Female

DRUGS (2)
  1. PAROXETIN-HORMOSAN 33,1MG/ML TROPFEN [Suspect]
     Active Substance: PAROXETINE MESYLATE
     Indication: PRODUCT USED FOR UNKNOWN INDICATION
     Dosage: 2-4 DROPS DAILY
     Route: 048
     Dates: start: 201711
  2. PAROXETIN 1A PHARMA [Concomitant]
     Active Substance: PAROXETINE
     Indication: PRODUCT USED FOR UNKNOWN INDICATION
     Dosage: 0.5 DF, QD
     Route: 048
     Dates: start: 201404

REACTIONS (3)
  - Discomfort [Recovered/Resolved]
  - Malaise [Recovered/Resolved]
  - Diarrhoea [Recovered/Resolved]

NARRATIVE: CASE EVENT DATE: 201801
